FAERS Safety Report 4313333-4 (Version None)
Quarter: 2004Q1

REPORT INFORMATION
  Report Type: 
  Country: None (occurrence: None)
  Receive Date: 20040304
  Receipt Date: 20040217
  Transmission Date: 20041129
  Serious: Yes (Hospitalization)
  Sender: FDA-Public Use
  Company Number: DSA_24027_2004

PATIENT
  Age: 74 Year
  Sex: Male

DRUGS (9)
  1. HERBESSER R [Suspect]
     Indication: HYPERTENSION
     Dosage: 100 MG Q DAY PO
     Route: 048
     Dates: start: 20031108, end: 20031222
  2. ADALAT [Suspect]
     Indication: HYPERTENSION
     Dosage: 20 MG Q DAY PO
     Route: 048
     Dates: start: 20031108, end: 20031222
  3. LIPITOR [Suspect]
     Indication: HYPERCHOLESTEROLAEMIA
     Dosage: 5 MG Q DAY PO
     Route: 048
     Dates: start: 20031108, end: 20031222
  4. GASTER D [Suspect]
     Indication: GASTRITIS
     Dosage: 10 MG Q DAY PO
     Route: 048
     Dates: start: 20031108
  5. CARDENALIN [Suspect]
     Indication: HYPERTENSION
     Dosage: 4 MG Q DAY PO
     Route: 048
     Dates: start: 20031108, end: 20031222
  6. CARDENALIN [Suspect]
     Indication: HYPERTENSION
     Dates: start: 20040115, end: 20040121
  7. LASIX [Suspect]
     Indication: RENAL FAILURE
     Dosage: 40 MG Q DAY PO
     Route: 048
     Dates: start: 20031113
  8. ALLOPURINOL [Suspect]
     Indication: HYPERURICAEMIA
     Dosage: 100 MG Q DAY PO
     Route: 048
     Dates: start: 20031116, end: 20031222
  9. GLIMICRON [Suspect]
     Indication: DIABETES MELLITUS
     Dosage: 40 MG Q DAY PO
     Route: 048
     Dates: start: 20031120, end: 20031222

REACTIONS (12)
  - ALANINE AMINOTRANSFERASE INCREASED [None]
  - ASPARTATE AMINOTRANSFERASE INCREASED [None]
  - BLOOD CREATINE INCREASED [None]
  - BLOOD LACTATE DEHYDROGENASE INCREASED [None]
  - BLOOD UREA INCREASED [None]
  - HYPERSENSITIVITY [None]
  - LIVER DISORDER [None]
  - LYMPHOCYTE STIMULATION TEST POSITIVE [None]
  - PIGMENTATION DISORDER [None]
  - PYREXIA [None]
  - RASH ERYTHEMATOUS [None]
  - WHITE BLOOD CELL COUNT INCREASED [None]
